FAERS Safety Report 5357629-6 (Version None)
Quarter: 2007Q2

REPORT INFORMATION
  Report Type: 
  Country: None (occurrence: None)
  Receive Date: 20070614
  Receipt Date: 20070531
  Transmission Date: 20071010
  Serious: Yes (Life-Threatening)
  Sender: FDA-Public Use
  Company Number: ES-NOVOPROD-264485

PATIENT
  Age: 83 Year
  Sex: Female

DRUGS (9)
  1. PRANDIN [Suspect]
     Indication: DRUG USE FOR UNKNOWN INDICATION
     Dosage: 1 MG, QD
     Route: 048
     Dates: start: 20070119, end: 20070211
  2. RENITECMAX [Suspect]
     Indication: DRUG USE FOR UNKNOWN INDICATION
     Route: 048
     Dates: start: 20070113, end: 20070211
  3. TAZOCEL [Suspect]
     Indication: DRUG USE FOR UNKNOWN INDICATION
     Dosage: .5 G, BID
     Route: 042
     Dates: start: 20070120, end: 20070208
  4. CITALOPRAM                         /00582602/ [Suspect]
     Indication: DRUG USE FOR UNKNOWN INDICATION
     Dosage: 20 MG, QD
     Route: 048
     Dates: start: 20070112, end: 20070211
  5. OMEPRAZOL                          /00661201/ [Suspect]
     Indication: DRUG USE FOR UNKNOWN INDICATION
     Dosage: 20 MG, QD
     Route: 048
     Dates: start: 20070113, end: 20070211
  6. SEGURIL                            /00032601/ [Suspect]
     Indication: DRUG USE FOR UNKNOWN INDICATION
     Dosage: UNK, UNK
     Route: 042
     Dates: start: 20070122, end: 20070223
  7. PLANTABEN                          /00029102/ [Suspect]
     Indication: DRUG USE FOR UNKNOWN INDICATION
     Dosage: 3.5 MG, BID
     Route: 048
     Dates: start: 20070209, end: 20070211
  8. SINTROM [Suspect]
     Indication: DRUG USE FOR UNKNOWN INDICATION
     Dosage: 4 MG, BID
     Route: 048
  9. LOITIN [Suspect]
     Indication: DRUG USE FOR UNKNOWN INDICATION
     Dosage: 25 MG, QD
     Route: 048
     Dates: start: 20070207, end: 20070211

REACTIONS (1)
  - GRANULOCYTOPENIA [None]
